FAERS Safety Report 6905813-X (Version None)
Quarter: 2010Q3

REPORT INFORMATION
  Report Type: 
  Country: None (occurrence: None)
  Receive Date: 20100804
  Receipt Date: 20100727
  Transmission Date: 20110219
  Serious: Yes (Hospitalization)
  Sender: FDA-Public Use
  Company Number: DE-ROCHE-675876

PATIENT
  Sex: Male
  Weight: 77 kg

DRUGS (3)
  1. PEGINTERFERON ALFA-2A [Suspect]
     Indication: HEPATITIS C
     Dosage: FORM : LOI
     Route: 058
     Dates: start: 20090211
  2. RIBAVIRIN [Suspect]
     Indication: HEPATITIS C
     Route: 048
     Dates: start: 20090211
  3. BLINDED BI 201335 NA [Suspect]
     Indication: HEPATITIS C
     Dosage: FORM : KA
     Route: 048
     Dates: start: 20090211, end: 20090310

REACTIONS (3)
  - ASCITES [None]
  - HYPOALBUMINAEMIA [None]
  - OEDEMA PERIPHERAL [None]
